FAERS Safety Report 9701139 (Version 1)
Quarter: 2013Q4

REPORT INFORMATION
  Report Type: Spontaneous
  Country: US (occurrence: None)
  Receive Date: 20131119
  Receipt Date: 20131119
  Transmission Date: 20140711
  Serious: Yes (Hospitalization)
  Sender: FDA-Public Use
  Company Number: SYM-2013-12923

PATIENT
  Age: 35 Year
  Sex: Male

DRUGS (1)
  1. XENAZINE (TETRABENAZINE) (12.5 MILLIGRAM, TABLET) (TETRABENAZINE) [Suspect]
     Indication: TOURETTE^S DISORDER
     Dosage: 4 IN 1 D
     Route: 048
     Dates: start: 20120405

REACTIONS (1)
  - Paranoia [None]
